FAERS Safety Report 7637578-0 (Version None)
Quarter: 2011Q3

REPORT INFORMATION
  Report Type: 
  Country: None (occurrence: None)
  Receive Date: 20110726
  Receipt Date: 20090428
  Transmission Date: 20111222
  Serious: Yes (Congenital Anomaly)
  Sender: FDA-Public Use
  Company Number: DE-ASTRAZENECA-2011SE29152

PATIENT
  Sex: Female
  Weight: 2.2 kg

DRUGS (3)
  1. CANDESARTAN CILEXETIL [Suspect]
     Route: 064
     Dates: start: 20071220, end: 20080326
  2. PIOGLITAZONE [Concomitant]
  3. METFORMIN HCL [Concomitant]

REACTIONS (3)
  - HYPOGLYCAEMIA NEONATAL [None]
  - FOETAL GROWTH RESTRICTION [None]
  - HYPOXIA [None]
